FAERS Safety Report 24755564 (Version 3)
Quarter: 2025Q3

REPORT INFORMATION
  Report Type: Report from Study
  Country: CA (occurrence: CA)
  Receive Date: 20241219
  Receipt Date: 20250926
  Transmission Date: 20251020
  Serious: Yes (Other)
  Sender: TAKEDA
  Company Number: CA-TAKEDA-2023TUS039631

PATIENT
  Age: 29 Year
  Sex: Female
  Weight: 108 kg

DRUGS (7)
  1. HUMAN IMMUNOGLOBULIN G [Suspect]
     Active Substance: HUMAN IMMUNOGLOBULIN G
     Indication: Primary immunodeficiency syndrome
     Dosage: 12 GRAM, 1/WEEK
     Dates: start: 20221127
  2. HUMAN IMMUNOGLOBULIN G [Suspect]
     Active Substance: HUMAN IMMUNOGLOBULIN G
     Indication: Immunodeficiency common variable
     Dosage: 12 GRAM, 1/WEEK
  3. HUMAN IMMUNOGLOBULIN G [Suspect]
     Active Substance: HUMAN IMMUNOGLOBULIN G
     Indication: Pneumonia
     Dosage: 12 GRAM, 1/WEEK
  4. HUMAN IMMUNOGLOBULIN G [Suspect]
     Active Substance: HUMAN IMMUNOGLOBULIN G
     Indication: Sinusitis bacterial
     Dosage: 12 GRAM, 1/WEEK
  5. FLUTICASONE FUROATE [Suspect]
     Active Substance: FLUTICASONE FUROATE
     Indication: Product used for unknown indication
     Dosage: UNK UNK, BID
  6. MOMETASONE [Suspect]
     Active Substance: MOMETASONE
     Indication: Product used for unknown indication
  7. CLARITHROMYCIN [Concomitant]
     Active Substance: CLARITHROMYCIN
     Dosage: 500 MILLIGRAM, Q2WEEKS

REACTIONS (15)
  - Kidney fibrosis [Unknown]
  - Haematochezia [Unknown]
  - COVID-19 [Recovering/Resolving]
  - Dry eye [Unknown]
  - Splenomegaly [Unknown]
  - Chronic sinusitis [Not Recovered/Not Resolved]
  - Otitis media [Unknown]
  - Chronic rhinosinusitis without nasal polyps [Not Recovered/Not Resolved]
  - Product use in unapproved indication [Unknown]
  - Sinusitis [Unknown]
  - Nasal congestion [Recovering/Resolving]
  - Epistaxis [Not Recovered/Not Resolved]
  - Cough [Not Recovered/Not Resolved]
  - Headache [Unknown]
  - Impetigo [Unknown]

NARRATIVE: CASE EVENT DATE: 20221127
